FAERS Safety Report 23452850 (Version 3)
Quarter: 2024Q1

REPORT INFORMATION
  Report Type: Spontaneous
  Country: US (occurrence: US)
  Receive Date: 20240129
  Receipt Date: 20240326
  Transmission Date: 20240410
  Serious: Yes (Other)
  Sender: FDA-Public Use
  Company Number: US-AMGEN-USASP2024015102

PATIENT
  Age: 75 Year
  Sex: Female

DRUGS (4)
  1. KANJINTI [Suspect]
     Active Substance: TRASTUZUMAB-ANNS
     Indication: Endometrial cancer
     Dosage: 462 MILLIGRAM, 840 MILLIGRAM
     Route: 065
  2. KANJINTI [Suspect]
     Active Substance: TRASTUZUMAB-ANNS
     Dosage: 462 MILLIGRAM, 840 MILLIGRAM
     Route: 065
     Dates: start: 20231230
  3. KANJINTI [Suspect]
     Active Substance: TRASTUZUMAB-ANNS
     Dosage: 462 MILLIGRAM, (840 MILLIGRAM 2 X 420MG)
     Route: 065
     Dates: start: 20240118
  4. KANJINTI [Suspect]
     Active Substance: TRASTUZUMAB-ANNS
     Dosage: 426 MILLIGRAM, TWO 420 MG VIALS 420 MG VIALS
     Route: 065

REACTIONS (2)
  - Neutropenia [Not Recovered/Not Resolved]
  - Off label use [Unknown]

NARRATIVE: CASE EVENT DATE: 20231214
